FAERS Safety Report 8370981-2 (Version None)
Quarter: 2012Q2

REPORT INFORMATION
  Report Type: 
  Country: None (occurrence: None)
  Receive Date: 20120518
  Receipt Date: 20120515
  Transmission Date: 20120825
  Serious: Yes (Other)
  Sender: FDA-Public Use
  Company Number: US-MERCK-1202USA04379

PATIENT
  Age: 62 Year
  Sex: Male
  Weight: 74 kg

DRUGS (5)
  1. OMEGA-3 MARINE TRIGLYCERIDES [Concomitant]
     Route: 065
     Dates: start: 20100101
  2. LISINOPRIL [Concomitant]
     Indication: HYPERTENSION
     Route: 048
     Dates: start: 20100101
  3. JANUMET [Suspect]
     Indication: DIABETES MELLITUS
     Route: 048
     Dates: start: 20120222, end: 20120301
  4. CINNAMON [Concomitant]
     Route: 065
     Dates: start: 20100101
  5. CALCIUM (UNSPECIFIED) [Concomitant]
     Route: 065
     Dates: start: 20100101

REACTIONS (3)
  - GINGIVAL SWELLING [None]
  - TOOTHACHE [None]
  - LOOSE TOOTH [None]
